FAERS Safety Report 4907631-0 (Version None)
Quarter: 2006Q1

REPORT INFORMATION
  Report Type: 
  Country: None (occurrence: None)
  Receive Date: 20060210
  Receipt Date: 20060203
  Transmission Date: 20060701
  Serious: Yes (Death)
  Sender: FDA-Public Use
  Company Number: US-MERCK-0602USA01385

PATIENT
  Age: 62 Year
  Sex: Female
  Weight: 71 kg

DRUGS (7)
  1. VIOXX [Suspect]
     Indication: OSTEOARTHRITIS
     Route: 048
     Dates: start: 20030131, end: 20030205
  2. LOTREL [Concomitant]
     Route: 065
  3. CLARITIN [Concomitant]
     Route: 065
  4. CLARINEX [Concomitant]
     Route: 065
  5. LIPITOR [Concomitant]
     Route: 065
  6. ZITHROMAX [Concomitant]
     Route: 065
  7. LOTENSIN [Concomitant]
     Route: 065

REACTIONS (3)
  - CARDIO-RESPIRATORY ARREST [None]
  - CHRONIC OBSTRUCTIVE PULMONARY DISEASE [None]
  - HYPERTENSION [None]
